FAERS Safety Report 22951393 (Version 2)
Quarter: 2023Q4

REPORT INFORMATION
  Report Type: Other
  Country: US (occurrence: None)
  Receive Date: 20230917
  Receipt Date: 20231005
  Transmission Date: 20240110
  Serious: No
  Sender: FDA-Public Use
  Company Number: US-ROCHE-3421000

PATIENT
  Age: 51 Year
  Sex: Male
  Weight: 123 kg

DRUGS (1)
  1. OCREVUS [Suspect]
     Active Substance: OCRELIZUMAB
     Indication: Relapsing-remitting multiple sclerosis
     Dosage: DATE OF TREATMENT: 20/FEB/2023, 21/APR/2022, 03/MAR/2021.
     Route: 042

REACTIONS (8)
  - COVID-19 [Unknown]
  - Dizziness [Recovered/Resolved]
  - Asthenia [Recovering/Resolving]
  - Fatigue [Recovering/Resolving]
  - Pulmonary congestion [Not Recovered/Not Resolved]
  - Sinusitis [Recovering/Resolving]
  - Bronchitis [Unknown]
  - Dyspnoea [Not Recovered/Not Resolved]

NARRATIVE: CASE EVENT DATE: 20230701
